FAERS Safety Report 9377822 (Version 1)
Quarter: 2013Q3

REPORT INFORMATION
  Report Type: Spontaneous
  Country: US (occurrence: US)
  Receive Date: 20130701
  Receipt Date: 20130701
  Transmission Date: 20140515
  Serious: No
  Sender: FDA-Public Use
  Company Number: US-GLAXOSMITHKLINE-A1017321A

PATIENT
  Age: 58 Year
  Sex: Female

DRUGS (1)
  1. IMITREX [Suspect]
     Dosage: 100MG UNKNOWN
     Route: 048
     Dates: start: 20130213

REACTIONS (3)
  - Nausea [Unknown]
  - Vomiting [Unknown]
  - Medication error [Unknown]
